FAERS Safety Report 7131102-7 (Version None)
Quarter: 2010Q4

REPORT INFORMATION
  Report Type: 
  Country: None (occurrence: None)
  Receive Date: 20101124
  Receipt Date: 20101124
  Transmission Date: 20110411
  Serious: Yes (Other)
  Sender: FDA-Public Use
  Company Number: None

PATIENT
  Age: 68 Year
  Sex: Female
  Weight: 83.0083 kg

DRUGS (2)
  1. TRIAMTERENE AND HYDROCHLOROTHIAZIDE [Suspect]
     Indication: HYPERTENSION
     Dates: start: 20090301, end: 20090501
  2. LISINOPRIL [Suspect]
     Dates: start: 20090501, end: 20090601

REACTIONS (4)
  - ADNEXA UTERI PAIN [None]
  - HAEMORRHAGE [None]
  - INCONTINENCE [None]
  - PAIN [None]
